FAERS Safety Report 17152590 (Version 4)
Quarter: 2022Q3

REPORT INFORMATION
  Report Type: Spontaneous
  Country: FR (occurrence: FR)
  Receive Date: 20191213
  Receipt Date: 20220701
  Transmission Date: 20221027
  Serious: Yes (Hospitalization, Other)
  Sender: FDA-Public Use
  Company Number: NVSC2019FR064215

PATIENT

DRUGS (4)
  1. CIPROFLOXACIN HYDROCHLORIDE [Suspect]
     Active Substance: CIPROFLOXACIN HYDROCHLORIDE
     Indication: Product used for unknown indication
     Dosage: 500 MG, BID (1000 MG)
     Route: 048
     Dates: start: 20190226, end: 20190228
  2. HYDROCORTISONE [Suspect]
     Active Substance: HYDROCORTISONE
     Indication: Product used for unknown indication
     Dosage: 20 MG, QD (20 MG/24 HOURS)
     Route: 048
     Dates: start: 20190227
  3. TINZAPARIN [Suspect]
     Active Substance: TINZAPARIN
     Indication: Product used for unknown indication
     Dosage: 1000 IU, QD
     Route: 058
     Dates: start: 20190226, end: 20190309
  4. PIPERACILLIN SODIUM\TAZOBACTAM SODIUM [Suspect]
     Active Substance: PIPERACILLIN SODIUM\TAZOBACTAM SODIUM
     Indication: Product used for unknown indication
     Dosage: 4 G, TID
     Route: 042
     Dates: start: 20190226, end: 20190228

REACTIONS (20)
  - Metabolic encephalopathy [Not Recovered/Not Resolved]
  - Febrile bone marrow aplasia [Not Recovered/Not Resolved]
  - Haemorrhoids [Not Recovered/Not Resolved]
  - Aphasia [Not Recovered/Not Resolved]
  - Rectal haemorrhage [Not Recovered/Not Resolved]
  - Device related infection [Not Recovered/Not Resolved]
  - Urinary retention [Not Recovered/Not Resolved]
  - Haemoptysis [Not Recovered/Not Resolved]
  - Pneumocystis jirovecii pneumonia [Not Recovered/Not Resolved]
  - Blast cells present [Not Recovered/Not Resolved]
  - Epistaxis [Not Recovered/Not Resolved]
  - Pyrexia [Not Recovered/Not Resolved]
  - Hallucination [Not Recovered/Not Resolved]
  - Hepatocellular injury [Not Recovered/Not Resolved]
  - Clostridium test [Not Recovered/Not Resolved]
  - Diarrhoea [Not Recovered/Not Resolved]
  - Chest pain [Not Recovered/Not Resolved]
  - Oedema [Not Recovered/Not Resolved]
  - Urticaria vesiculosa [Unknown]
  - Rash [Not Recovered/Not Resolved]

NARRATIVE: CASE EVENT DATE: 20190309
